FAERS Safety Report 9665756 (Version 3)
Quarter: 2015Q4

REPORT INFORMATION
  Report Type: Spontaneous
  Country: US (occurrence: US)
  Receive Date: 20131104
  Receipt Date: 20151105
  Transmission Date: 20160305
  Serious: Yes (Hospitalization, Other)
  Sender: FDA-Public Use
  Company Number: US-BAYER-2013-133287

PATIENT
  Age: 44 Year
  Sex: Female

DRUGS (7)
  1. COUMADIN [Suspect]
     Active Substance: WARFARIN SODIUM
     Indication: THROMBOSIS
  2. WARFARIN [Suspect]
     Active Substance: WARFARIN
     Indication: PULMONARY EMBOLISM
     Dosage: 7.5 MG, ON SUNDAY, MONDAY, WEDNESDAY AND FRIDAYS
  3. WARFARIN [Suspect]
     Active Substance: WARFARIN
     Indication: THROMBOSIS
     Dosage: 5 MG,ON TUESDAY, THURSDAY AND SATURDAYS
  4. MIRENA [Suspect]
     Active Substance: LEVONORGESTREL
     Indication: MENORRHAGIA
     Dosage: 20 ?G/D, CONT
     Route: 015
  5. LOESTRIN NOS [Suspect]
     Active Substance: ETHINYL ESTRADIOL\NORETHINDRONE ACETATE
     Indication: CONTRACEPTION
     Dosage: UNK
     Dates: end: 201205
  6. WARFARIN [Suspect]
     Active Substance: WARFARIN
     Indication: THROMBOSIS
     Dosage: 7.5 MG, QD
  7. NEXIUM [Concomitant]
     Active Substance: ESOMEPRAZOLE MAGNESIUM
     Indication: DYSPEPSIA

REACTIONS (24)
  - Back pain [None]
  - Hypertonic bladder [Not Recovered/Not Resolved]
  - Deep vein thrombosis [Recovering/Resolving]
  - Pain [Recovering/Resolving]
  - Constipation [None]
  - Vulvovaginal pain [Unknown]
  - Vulvovaginal mycotic infection [Not Recovered/Not Resolved]
  - Vulvovaginal burning sensation [Not Recovered/Not Resolved]
  - Urinary incontinence [Not Recovered/Not Resolved]
  - Menstruation delayed [Recovered/Resolved]
  - Menorrhagia [Not Recovered/Not Resolved]
  - Pain in extremity [Recovering/Resolving]
  - Vulvovaginal pruritus [Not Recovered/Not Resolved]
  - Peripheral swelling [Recovering/Resolving]
  - Feeling abnormal [Recovering/Resolving]
  - Dyspepsia [Unknown]
  - Dyspnoea exertional [Unknown]
  - Pelvic pain [None]
  - Flatulence [None]
  - Vulvovaginal discomfort [Not Recovered/Not Resolved]
  - Pulmonary embolism [Unknown]
  - Erythema [Recovering/Resolving]
  - Feeling hot [Recovering/Resolving]
  - Abdominal pain [None]

NARRATIVE: CASE EVENT DATE: 201202
